FAERS Safety Report 14317716 (Version 1)
Quarter: 2017Q4

REPORT INFORMATION
  Report Type: Report from Study
  Country: GB (occurrence: GB)
  Receive Date: 20171222
  Receipt Date: 20171222
  Transmission Date: 20180321
  Serious: Yes (Death)
  Sender: FDA-Public Use
  Company Number: PHHO2017GB017159

PATIENT
  Weight: 58 kg

DRUGS (3)
  1. DOCETAXEL. [Suspect]
     Active Substance: DOCETAXEL
     Indication: METASTASES TO BONE
     Dosage: 120 MG
     Route: 042
     Dates: start: 20111129
  2. DECAPEPTYL [Concomitant]
     Active Substance: TRIPTORELIN
     Indication: METASTASES TO BONE
     Dosage: 11.25 MG
     Route: 058
     Dates: start: 20110822
  3. ZOLEDRONATE [Suspect]
     Active Substance: ZOLEDRONIC ACID
     Indication: METASTASES TO BONE
     Dosage: 3.3 MG, UNK
     Route: 042
     Dates: start: 20111129

REACTIONS (1)
  - Osteomyelitis [Fatal]

NARRATIVE: CASE EVENT DATE: 20160815
